FAERS Safety Report 5941324-6 (Version None)
Quarter: 2008Q4

REPORT INFORMATION
  Report Type: 
  Country: None (occurrence: None)
  Receive Date: 20081105
  Receipt Date: 20081024
  Transmission Date: 20090506
  Serious: Yes (Hospitalization)
  Sender: FDA-Public Use
  Company Number: FR-JNJFOC-20081003689

PATIENT
  Age: 74 Year
  Sex: Male
  Weight: 77 kg

DRUGS (11)
  1. REMICADE [Suspect]
     Route: 042
  2. REMICADE [Suspect]
     Indication: PSORIASIS
     Route: 042
  3. HYDROCORTISONE [Suspect]
     Indication: SJOGREN'S SYNDROME
     Route: 048
  4. ZANIDIP [Concomitant]
     Indication: HYPERTENSION
     Route: 048
  5. ALPHA 1 [Concomitant]
     Indication: RENAL FAILURE
     Route: 048
  6. EPO [Concomitant]
     Indication: RENAL FAILURE
     Route: 058
  7. LANTUS [Concomitant]
     Indication: DIABETES MELLITUS
     Route: 058
  8. NOVORAPID [Concomitant]
     Indication: DIABETES MELLITUS
     Dosage: 7 TO 12 UNITS THREE TIMES A DAY
     Route: 058
  9. COZAAR [Concomitant]
  10. KAYEXALATE [Concomitant]
  11. ARANESP [Concomitant]

REACTIONS (6)
  - ABDOMINAL PAIN [None]
  - COUGH [None]
  - NAUSEA [None]
  - PERTUSSIS [None]
  - PYREXIA [None]
  - VOMITING [None]
